FAERS Safety Report 5306020-7 (Version None)
Quarter: 2007Q2

REPORT INFORMATION
  Report Type: 
  Country: None (occurrence: None)
  Receive Date: 20070424
  Receipt Date: 20070413
  Transmission Date: 20071010
  Serious: Yes (Other)
  Sender: FDA-Public Use
  Company Number: DE-ROCHE-482107

PATIENT
  Age: 34 Year
  Sex: Female
  Weight: 74 kg

DRUGS (1)
  1. XELODA [Suspect]
     Indication: BREAST CANCER
     Route: 048
     Dates: start: 20070305, end: 20070305

REACTIONS (3)
  - CHEST DISCOMFORT [None]
  - HYPERVENTILATION [None]
  - PHARYNGEAL MASS [None]
